FAERS Safety Report 20698697 (Version 1)
Quarter: 2022Q2

REPORT INFORMATION
  Report Type: Spontaneous
  Country: JP (occurrence: JP)
  Receive Date: 20220412
  Receipt Date: 20220412
  Transmission Date: 20220721
  Serious: Yes (Other)
  Sender: FDA-Public Use
  Company Number: JP-SUN PHARMACEUTICAL INDUSTRIES LTD-2022RR-333033

PATIENT
  Age: 57 Year
  Sex: Male

DRUGS (3)
  1. GEMCITABINE [Suspect]
     Active Substance: GEMCITABINE
     Indication: Pancreatic carcinoma
     Dosage: UNK, 5 COURSES
     Route: 065
  2. GEMCITABINE [Suspect]
     Active Substance: GEMCITABINE
     Dosage: UNK, 9 COURSES
     Route: 065
  3. PACLITAXEL [Concomitant]
     Active Substance: PACLITAXEL
     Indication: Pancreatic carcinoma
     Dosage: UNK, 5 COURSES
     Route: 065

REACTIONS (7)
  - Headache [Recovering/Resolving]
  - Dyspnoea [Recovering/Resolving]
  - Oxygen saturation decreased [Recovering/Resolving]
  - Haemolytic anaemia [Recovering/Resolving]
  - Thrombocytopenia [Recovering/Resolving]
  - Renal impairment [Recovering/Resolving]
  - Thrombotic microangiopathy [Recovering/Resolving]
